FAERS Safety Report 4891084-5 (Version None)
Quarter: 2006Q1

REPORT INFORMATION
  Report Type: 
  Country: None (occurrence: None)
  Receive Date: 20060125
  Receipt Date: 20050428
  Transmission Date: 20060701
  Serious: Yes (Hospitalization, Disabling, Other)
  Sender: FDA-Public Use
  Company Number: US-MERCK-0505USA00249

PATIENT
  Age: 62 Year
  Sex: Male
  Weight: 58 kg

DRUGS (13)
  1. VIOXX [Suspect]
     Indication: PAIN IN EXTREMITY
     Route: 048
     Dates: start: 19990101, end: 20030101
  2. LIPITOR [Concomitant]
     Route: 065
  3. LESCOL [Concomitant]
     Route: 065
  4. LEVOXYL [Concomitant]
     Route: 065
  5. AMOXICILLIN [Concomitant]
     Route: 065
  6. BELLADONNA [Concomitant]
     Route: 065
  7. TYLENOL W/ CODEINE [Concomitant]
     Route: 065
  8. PRILOSEC [Concomitant]
     Route: 065
  9. KEFLEX [Concomitant]
     Route: 065
  10. VISTARIL [Concomitant]
     Route: 065
  11. [THERAPY UNSPECIFIED] [Concomitant]
     Route: 065
  12. PLAVIX [Concomitant]
     Route: 065
  13. LEVOTHYROXINE SODIUM [Concomitant]
     Route: 065

REACTIONS (16)
  - ABDOMINAL PAIN [None]
  - ACUTE MYOCARDIAL INFARCTION [None]
  - ADVERSE EVENT [None]
  - ANGINA PECTORIS [None]
  - BACK PAIN [None]
  - BRADYCARDIA [None]
  - CARDIAC ARREST [None]
  - CORONARY ARTERY DISEASE [None]
  - ECZEMA [None]
  - FEMORAL ARTERY OCCLUSION [None]
  - HYPERTENSION [None]
  - ILIAC ARTERY STENOSIS [None]
  - INTERMITTENT CLAUDICATION [None]
  - STENT OCCLUSION [None]
  - THROMBOSIS [None]
  - VENTRICULAR FIBRILLATION [None]
